FAERS Safety Report 7308046 (Version 2)
Quarter: 2013Q2

REPORT INFORMATION
  Report Type: Spontaneous
  Country: US (occurrence: None)
  Receive Date: 20100216
  Receipt Date: 20130604
  Transmission Date: 20140414
  Serious: Yes (Hospitalization, Other)
  Sender: FDA-Public Use
  Company Number: AUR-APL-2010-00378

PATIENT
  Age: 81 Year
  Sex: Female

DRUGS (1)
  1. CEFAZOLIN [Suspect]
     Indication: PRODUCT USED FOR UNKNOWN INDICATION
     Dosage: IV
     Route: 042

REACTIONS (9)
  - HYPERSENSITIVITY [None]
  - HYPERTENSIVE CRISIS [None]
  - RESPIRATORY DISTRESS [None]
  - ELECTROCARDIOGRAM ST SEGMENT ELEVATION [None]
  - CORONARY ARTERY DISEASE [None]
  - HYPERKINESIA [None]
  - STRESS CARDIOMYOPATHY [None]
  - TROPONIN INCREASED [None]
  - Hypertensive crisis [None]
